FAERS Safety Report 8102852-0 (Version None)
Quarter: 2012Q1

REPORT INFORMATION
  Report Type: 
  Country: None (occurrence: None)
  Receive Date: 20120127
  Receipt Date: 20120119
  Transmission Date: 20120608
  Serious: Yes (Other)
  Sender: FDA-Public Use
  Company Number: 2012SP003488

PATIENT
  Age: 21 Year
  Sex: Female

DRUGS (2)
  1. FLOXACILLIN SODIUM [Suspect]
     Indication: INFECTED DERMAL CYST
     Dosage: 250 MG;QID;PO
     Route: 048
     Dates: start: 20111102, end: 20111109
  2. NEXPLANON [Suspect]
     Indication: CONTRACEPTION
     Dosage: 68 MG; ; SBDE
     Route: 059
     Dates: start: 20110916, end: 20120109

REACTIONS (6)
  - DRUG INTERACTION [None]
  - DEVICE DEPLOYMENT ISSUE [None]
  - ABORTION SPONTANEOUS [None]
  - INFECTED DERMAL CYST [None]
  - PREGNANCY WITH IMPLANT CONTRACEPTIVE [None]
  - MATERNAL EXPOSURE DURING PREGNANCY [None]
